FAERS Safety Report 21093416 (Version 2)
Quarter: 2022Q3

REPORT INFORMATION
  Report Type: Other
  Country: GB (occurrence: GB)
  Receive Date: 20220718
  Receipt Date: 20220729
  Transmission Date: 20221026
  Serious: Yes (Disabling)
  Sender: FDA-Public Use
  Company Number: None

PATIENT
  Age: 53 Year
  Sex: Female
  Weight: 54 kg

DRUGS (12)
  1. PREDNISOLONE [Suspect]
     Active Substance: PREDNISOLONE
     Indication: Product used for unknown indication
     Dosage: 4 DOSAGE FORM PER DAY, 4 {DF}, QD
     Route: 065
     Dates: start: 20220630
  2. PREDNISOLONE [Suspect]
     Active Substance: PREDNISOLONE
     Dosage: 4 DOSAGE FORM PER DAY
     Route: 065
     Dates: start: 20220630
  3. METRONIDAZOLE [Suspect]
     Active Substance: METRONIDAZOLE
     Indication: Ill-defined disorder
     Dosage: UNK
     Route: 065
     Dates: start: 20220630
  4. FEXOFENADINE [Suspect]
     Active Substance: FEXOFENADINE HYDROCHLORIDE
     Indication: Hypersensitivity
     Dosage: 1 DOSAGE FORM PER DAY, ONE DAILY
     Route: 065
     Dates: start: 20220630
  5. FEXOFENADINE [Suspect]
     Active Substance: FEXOFENADINE HYDROCHLORIDE
     Indication: Allergy prophylaxis
     Dosage: UNK
     Route: 065
  6. FEXOFENADINE [Suspect]
     Active Substance: FEXOFENADINE HYDROCHLORIDE
     Dosage: 1 DOSAGE FORM PER DAY, TAKE ONE DAILY TO SUPPRESS ALLERGIC SYMPTOMS
     Route: 065
     Dates: start: 20220630
  7. ALENDRONIC ACID [Concomitant]
     Active Substance: ALENDRONIC ACID
     Indication: Product used for unknown indication
     Dosage: 1 DOSAGE FORM, 1 {DF}, 1X A WEEK
     Route: 065
     Dates: start: 20210128
  8. LANOLIN\LIGHT MINERAL OIL\PARAFFIN [Concomitant]
     Active Substance: LANOLIN\LIGHT MINERAL OIL\PARAFFIN
     Indication: Product used for unknown indication
     Dosage: UNK, USE AS DIRECTED
     Route: 065
     Dates: start: 20210128
  9. FEMOSTON [DYDROGESTERONE;ESTRADIOL HEMIHYDRATE] [Concomitant]
     Indication: Product used for unknown indication
     Dosage: 1 DOSAGE FORM PER DAY, 1 {DF}, QD
     Route: 065
     Dates: start: 20210218
  10. NIFEDIPINE [Concomitant]
     Active Substance: NIFEDIPINE
     Indication: Product used for unknown indication
     Dosage: 1 DOSAGE FORM PER DAY, 1 {DF}, QD
     Route: 065
     Dates: start: 20210128
  11. OMEPRAZOLE [Concomitant]
     Active Substance: OMEPRAZOLE
     Indication: Product used for unknown indication
     Dosage: 1 DOSAGE FORM PER DAY, 1 {DF}, QD
     Route: 065
     Dates: start: 20210128
  12. ULTRABASE [WHITE SOFT PARAFFIN] [Concomitant]
     Indication: Product used for unknown indication
     Dosage: UNK, APPLY FOUR TIMES/DAY
     Route: 065
     Dates: start: 20220112

REACTIONS (1)
  - Rash [Recovered/Resolved]

NARRATIVE: CASE EVENT DATE: 20220630
